FAERS Safety Report 9498512 (Version 6)
Quarter: 2014Q1

REPORT INFORMATION
  Report Type: Spontaneous
  Country: JP (occurrence: JP)
  Receive Date: 20130904
  Receipt Date: 20140326
  Transmission Date: 20141002
  Serious: Yes (Disabling)
  Sender: FDA-Public Use
  Company Number: JP-GLAXOSMITHKLINE-B0900071A

PATIENT
  Age: 40 Year
  Sex: Male

DRUGS (2)
  1. HEPSERA 10 [Suspect]
     Indication: CHRONIC HEPATITIS B
     Dosage: 10MG PER DAY
     Route: 048
     Dates: start: 200505, end: 20130613
  2. ZEFIX 100 [Suspect]
     Indication: CHRONIC HEPATITIS B
     Dosage: 100MG PER DAY
     Route: 048
     Dates: start: 200405

REACTIONS (7)
  - Fanconi syndrome [Recovering/Resolving]
  - Osteomalacia [Recovering/Resolving]
  - Liver disorder [Recovered/Resolved]
  - Hepatitis [Unknown]
  - Back pain [Unknown]
  - Proteinuria [Unknown]
  - Glucose urine present [Unknown]
